FAERS Safety Report 23517639 (Version 1)
Quarter: 2024Q1

REPORT INFORMATION
  Report Type: Spontaneous
  Country: IT (occurrence: IT)
  Receive Date: 20240213
  Receipt Date: 20240213
  Transmission Date: 20240410
  Serious: Yes (Other)
  Sender: FDA-Public Use
  Company Number: None

PATIENT

DRUGS (3)
  1. CARBOPLATIN [Suspect]
     Active Substance: CARBOPLATIN
     Indication: Small cell lung cancer
     Route: 042
     Dates: start: 20230620, end: 20230620
  2. ETOPOSIDE [Suspect]
     Active Substance: ETOPOSIDE
     Indication: Small cell lung cancer
     Route: 042
     Dates: start: 20230620, end: 20230622
  3. IMFINZI [Suspect]
     Active Substance: DURVALUMAB
     Indication: Small cell lung cancer
     Route: 042
     Dates: start: 20230620, end: 20230620

REACTIONS (1)
  - Hypothyroidism [Recovering/Resolving]

NARRATIVE: CASE EVENT DATE: 20230707
